FAERS Safety Report 7119815-4 (Version None)
Quarter: 2010Q4

REPORT INFORMATION
  Report Type: 
  Country: None (occurrence: None)
  Receive Date: 20101123
  Receipt Date: 20100910
  Transmission Date: 20110411
  Serious: No
  Sender: FDA-Public Use
  Company Number: US-BRISTOL-MYERS SQUIBB COMPANY-15259518

PATIENT
  Age: 71 Year
  Sex: Female
  Weight: 110 kg

DRUGS (2)
  1. ONGLYZA [Suspect]
     Indication: TYPE 2 DIABETES MELLITUS
     Dates: start: 20100826
  2. GLIPIZIDE [Suspect]

REACTIONS (1)
  - PRODUCTIVE COUGH [None]
